FAERS Safety Report 23047816 (Version 1)
Quarter: 2023Q4

REPORT INFORMATION
  Report Type: Spontaneous
  Country: US (occurrence: US)
  Receive Date: 20231010
  Receipt Date: 20231010
  Transmission Date: 20240110
  Serious: No
  Sender: FDA-Public Use
  Company Number: US-009507513-2309USA006455

PATIENT
  Age: 67 Year
  Sex: Female

DRUGS (1)
  1. BELSOMRA [Suspect]
     Active Substance: SUVOREXANT
     Indication: Insomnia
     Dosage: 100 MILLIGRAM
     Route: 048

REACTIONS (3)
  - Somnolence [Recovering/Resolving]
  - Fatigue [Recovering/Resolving]
  - Intentional overdose [Unknown]
